FAERS Safety Report 4629012-X (Version None)
Quarter: 2005Q2

REPORT INFORMATION
  Report Type: 
  Country: None (occurrence: None)
  Receive Date: 20050405
  Receipt Date: 20050405
  Transmission Date: 20051028
  Serious: Yes (Hospitalization, Other)
  Sender: FDA-Public Use
  Company Number: None

PATIENT
  Age: 28 Year
  Sex: Male
  Weight: 79.3795 kg

DRUGS (1)
  1. OXYCONTIN [Suspect]
     Indication: BACK PAIN
     Dosage: 160MG DAILY ORAL
     Route: 047

REACTIONS (2)
  - DRUG DEPENDENCE [None]
  - RELATIONSHIP BREAKDOWN [None]
